FAERS Safety Report 24312634 (Version 1)
Quarter: 2024Q3

REPORT INFORMATION
  Report Type: Spontaneous
  Country: NL (occurrence: NL)
  Receive Date: 20240912
  Receipt Date: 20240912
  Transmission Date: 20241017
  Serious: Yes (Other)
  Sender: PERRIGO
  Company Number: None

PATIENT
  Age: 70 Year
  Sex: Male
  Weight: 83 kg

DRUGS (6)
  1. ACETAMINOPHEN [Suspect]
     Active Substance: ACETAMINOPHEN
     Indication: Analgesic therapy
     Dosage: 4 * 2
     Route: 065
     Dates: start: 20231128
  2. PREDNISONE [Concomitant]
     Active Substance: PREDNISONE
     Indication: Product used for unknown indication
     Dosage: 30 MG
     Route: 065
  3. SUFENTANIL CITRATE [Concomitant]
     Active Substance: SUFENTANIL CITRATE
     Dosage: FENTANIL PLEISTER START MET 50 MG AFBOUWENDE NAAR 37 EN NU 12 MG
  4. SULFAMETHOXAZOLE\TRIMETHOPRIM [Concomitant]
     Active Substance: SULFAMETHOXAZOLE\TRIMETHOPRIM
     Dosage: 480 MG
  5. AMITRIPTYLINE HYDROCHLORIDE [Concomitant]
     Active Substance: AMITRIPTYLINE HYDROCHLORIDE
     Dosage: TABLET, 25 MG (MILLIGRAM)
  6. OMEPRAZOLE [Concomitant]
     Active Substance: OMEPRAZOLE
     Dosage: 40 MG

REACTIONS (5)
  - Abdominal discomfort [Not Recovered/Not Resolved]
  - Alanine aminotransferase increased [Not Recovered/Not Resolved]
  - Diaphragmalgia [Not Recovered/Not Resolved]
  - Malaise [Not Recovered/Not Resolved]
  - Aspartate aminotransferase increased [Not Recovered/Not Resolved]
